FAERS Safety Report 25110554 (Version 2)
Quarter: 2025Q2

REPORT INFORMATION
  Report Type: Spontaneous
  Country: US (occurrence: US)
  Receive Date: 20250324
  Receipt Date: 20250415
  Transmission Date: 20250716
  Serious: No
  Sender: AAVIS PHARMACEUTICALS
  Company Number: US-AVS-000025

PATIENT
  Sex: Male

DRUGS (1)
  1. MEXILETINE HYDROCHLORIDE [Suspect]
     Active Substance: MEXILETINE HYDROCHLORIDE
     Indication: Cardiac disorder
     Route: 065

REACTIONS (6)
  - Eating disorder [Recovered/Resolved]
  - Product physical issue [Unknown]
  - Product taste abnormal [Unknown]
  - Product dose omission issue [Unknown]
  - Oropharyngeal pain [Recovered/Resolved]
  - Mouth injury [Unknown]

NARRATIVE: CASE EVENT DATE: 20240901
